FAERS Safety Report 6286335-9 (Version None)
Quarter: 2009Q3

REPORT INFORMATION
  Report Type: 
  Country: None (occurrence: None)
  Receive Date: 20090727
  Receipt Date: 20090727
  Transmission Date: 20100115
  Serious: Yes (Life-Threatening, Other)
  Sender: FDA-Public Use
  Company Number: None

PATIENT
  Age: 78 Year
  Sex: Female
  Weight: 43.0917 kg

DRUGS (2)
  1. LISINOPRIL [Suspect]
     Indication: BLOOD PRESSURE INADEQUATELY CONTROLLED
     Dosage: 2.5 MG LISINOPRIL 1 TABLET DAILY ORALLY
     Route: 048
     Dates: start: 20090501, end: 20090615
  2. LISINOPRIL [Suspect]
     Indication: FAMILIAL RISK FACTOR
     Dosage: 2.5 MG LISINOPRIL 1 TABLET DAILY ORALLY
     Route: 048
     Dates: start: 20090501, end: 20090615

REACTIONS (5)
  - HYPERSENSITIVITY [None]
  - JOINT SWELLING [None]
  - OEDEMA PERIPHERAL [None]
  - PRODUCT SUBSTITUTION ISSUE [None]
  - REACTION TO DRUG EXCIPIENTS [None]
